FAERS Safety Report 6453411-7 (Version None)
Quarter: 2009Q4

REPORT INFORMATION
  Report Type: 
  Country: None (occurrence: None)
  Receive Date: 20091117
  Receipt Date: 20091104
  Transmission Date: 20100525
  Serious: Yes (Death, Other)
  Sender: FDA-Public Use
  Company Number: CLOF-1000722

PATIENT
  Age: 43 Year
  Sex: Female
  Weight: 88 kg

DRUGS (11)
  1. EVOLTRA (CLOFARABINE) SOLUTION FOR INFUSION [Suspect]
     Indication: ACUTE MYELOID LEUKAEMIA
     Dosage: 40 MG/M2, QDX5, INTRAVENOUS : 40 MG/M2, QD, INTRAVENOUS
     Route: 042
     Dates: start: 20090615, end: 20090619
  2. EVOLTRA (CLOFARABINE) SOLUTION FOR INFUSION [Suspect]
     Indication: ACUTE MYELOID LEUKAEMIA
     Dosage: 40 MG/M2, QDX5, INTRAVENOUS : 40 MG/M2, QD, INTRAVENOUS
     Route: 042
     Dates: start: 20090921, end: 20090924
  3. CYTARABINE [Suspect]
     Indication: ACUTE MYELOID LEUKAEMIA
     Dosage: 1 G/M2, QD,
     Dates: start: 20090921, end: 20090924
  4. MYLOTARG [Suspect]
     Indication: ACUTE MYELOID LEUKAEMIA
     Dosage: 6 MG/M2, ONCE
     Dates: start: 20090921, end: 20090921
  5. PREDNISOLONE [Concomitant]
  6. AMBISOME [Concomitant]
  7. RASBURICASE [Concomitant]
  8. NEXIUM (ESOMEPRAZOLE SODIUM) [Concomitant]
  9. PREDNISOLONE [Concomitant]
  10. VALTREX [Concomitant]
  11. PIPERACILLIN SODIUM AND TAZOBACTAM SODIUM [Concomitant]

REACTIONS (6)
  - METABOLIC ACIDOSIS [None]
  - MULTI-ORGAN FAILURE [None]
  - PERICARDITIS [None]
  - RENAL IMPAIRMENT [None]
  - RESPIRATORY DISTRESS [None]
  - SEPTIC SHOCK [None]
